FAERS Safety Report 8983923 (Version 1)
Quarter: 2012Q4

REPORT INFORMATION
  Report Type: Spontaneous
  Country: US (occurrence: None)
  Receive Date: 20121218
  Receipt Date: 20121218
  Transmission Date: 20130627
  Serious: Yes (Disabling)
  Sender: FDA-Public Use
  Company Number: None

PATIENT
  Age: 69 Year
  Sex: Male
  Weight: 59.2 kg

DRUGS (1)
  1. DAPTOMYCIN [Suspect]
     Indication: CATHETER INFECTION
     Route: 042
     Dates: start: 20120104, end: 20120106

REACTIONS (1)
  - Eosinophilic pneumonia [None]
